FAERS Safety Report 10174977 (Version 2)
Quarter: 2014Q2

REPORT INFORMATION
  Report Type: Spontaneous
  Country: NL (occurrence: NL)
  Receive Date: 20140515
  Receipt Date: 20140527
  Transmission Date: 20141212
  Serious: Yes (Other)
  Sender: FDA-Public Use
  Company Number: PHHY2014NL058995

PATIENT
  Sex: 0

DRUGS (10)
  1. TOBI PODHALER [Suspect]
     Indication: CYSTIC FIBROSIS
     Dosage: 112 MG (4 CAPSULES)
     Route: 055
     Dates: start: 20140428, end: 20140429
  2. TOBI PODHALER [Suspect]
     Dosage: 56 MG (2 CAPSULES)
     Route: 055
     Dates: start: 20140512, end: 20140513
  3. DOXYCYCLINE [Concomitant]
     Dosage: 100 MG, BID
  4. PANCREASE [Concomitant]
     Dosage: UNK (AT THE MEALS)
  5. DAGRAVIT [Concomitant]
     Dosage: 1 DF, TID
  6. VITAMIN E [Concomitant]
     Dosage: 1 DF (150MG), DAILY
  7. LOSEC MUPS [Concomitant]
     Dosage: 2 DF (10MG), DAILY
  8. VENTOLIN                           /00942701/ [Concomitant]
     Dosage: 2 DF DAILY (1 PER NEBULIZATION)
     Route: 055
  9. IBUPROFEN [Concomitant]
     Dosage: 3 DF (200MG), DAILY
  10. NACL [Concomitant]
     Dosage: 2 DF, 10 ML (PER NEBULIZATION))
     Route: 055

REACTIONS (11)
  - Inflammation [Recovered/Resolved]
  - Respiratory tract oedema [Recovered/Resolved]
  - Swelling [Recovered/Resolved]
  - Influenza like illness [Recovered/Resolved]
  - Rhinorrhoea [Recovered/Resolved]
  - Fatigue [Recovered/Resolved]
  - Chills [Recovered/Resolved]
  - Pyrexia [Recovered/Resolved]
  - Headache [Recovered/Resolved]
  - Peripheral coldness [Recovered/Resolved]
  - Dyspnoea [Recovered/Resolved]
